FAERS Safety Report 6779717-X (Version None)
Quarter: 2010Q2

REPORT INFORMATION
  Report Type: 
  Country: None (occurrence: None)
  Receive Date: 20100618
  Receipt Date: 20100615
  Transmission Date: 20101027
  Serious: Yes (Death, Other)
  Sender: FDA-Public Use
  Company Number: PHHY2010FR32034

PATIENT
  Sex: Male
  Weight: 80 kg

DRUGS (3)
  1. RASILEZ [Suspect]
     Indication: HYPERTENSION
     Dosage: 300 MG DAILY
     Dates: start: 20090911
  2. LODOZ [Concomitant]
     Indication: HYPERTENSION
     Dosage: 10 MG, QD
     Dates: start: 20090901
  3. ZANIDIP [Concomitant]
     Indication: HYPERTENSION
     Dosage: 20 MG, QD
     Dates: start: 20040809

REACTIONS (8)
  - AGITATION [None]
  - CARDIO-RESPIRATORY ARREST [None]
  - FALL [None]
  - MALAISE [None]
  - PRESYNCOPE [None]
  - RESTLESSNESS [None]
  - URINE ODOUR ABNORMAL [None]
  - VOMITING [None]
